FAERS Safety Report 14009265 (Version 3)
Quarter: 2018Q2

REPORT INFORMATION
  Report Type: Spontaneous
  Country: DK (occurrence: DK)
  Receive Date: 20170925
  Receipt Date: 20180507
  Transmission Date: 20180711
  Serious: Yes (Other)
  Sender: FDA-Public Use
  Company Number: PHHY2017DK137782

PATIENT
  Age: 65 Year
  Sex: Female

DRUGS (1)
  1. TRAMADOL RETARD HEXAL [Suspect]
     Active Substance: TRAMADOL HYDROCHLORIDE
     Indication: PAIN
     Dosage: 100 MG, TID
     Route: 048
     Dates: start: 2014

REACTIONS (13)
  - Nausea [Not Recovered/Not Resolved]
  - Rebound effect [Unknown]
  - Withdrawal syndrome [Unknown]
  - Headache [Recovering/Resolving]
  - Pain [Recovered/Resolved]
  - Insomnia [Unknown]
  - Palpitations [Recovered/Resolved]
  - Dependence [Not Recovered/Not Resolved]
  - Restless legs syndrome [Unknown]
  - Hyperhidrosis [Recovered/Resolved]
  - Sensory disturbance [Not Recovered/Not Resolved]
  - Vomiting [Recovered/Resolved]
  - Dizziness [Not Recovered/Not Resolved]

NARRATIVE: CASE EVENT DATE: 2014
